FAERS Safety Report 7658287-8 (Version None)
Quarter: 2011Q3

REPORT INFORMATION
  Report Type: 
  Country: None (occurrence: None)
  Receive Date: 20110802
  Receipt Date: 20110720
  Transmission Date: 20111222
  Serious: Yes (Disabling)
  Sender: FDA-Public Use
  Company Number: 2011AP001559

PATIENT
  Age: 51 Year
  Sex: Male

DRUGS (2)
  1. LEFLUNOMIDE [Suspect]
     Indication: PRODUCT USED FOR UNKNOWN INDICATION
     Dosage: PO
     Route: 048
     Dates: start: 20110104, end: 20110713
  2. OMEPRAZOLE [Concomitant]

REACTIONS (5)
  - CONTUSION [None]
  - TENDERNESS [None]
  - MUSCLE RUPTURE [None]
  - CHEST PAIN [None]
  - BACK PAIN [None]
